FAERS Safety Report 16909803 (Version 1)
Quarter: 2019Q4

REPORT INFORMATION
  Report Type: Spontaneous
  Country: ES (occurrence: ES)
  Receive Date: 20191011
  Receipt Date: 20191011
  Transmission Date: 20200122
  Serious: Yes (Other)
  Sender: FDA-Public Use
  Company Number: ES-MYLANLABS-2019M1096628

PATIENT
  Age: 63 Year
  Sex: Female

DRUGS (12)
  1. ENOXAPARINA [Concomitant]
     Active Substance: ENOXAPARIN
     Dosage: 4000 INTERNATIONAL UNIT, QD
     Route: 058
     Dates: start: 20190803, end: 20190830
  2. DEPRAX                             /00447702/ [Concomitant]
     Active Substance: TRAZODONE HYDROCHLORIDE
     Dosage: 100 MILLIGRAM, QD
     Route: 048
     Dates: start: 20150824
  3. ROACTEMRA [Concomitant]
     Active Substance: TOCILIZUMAB
     Dosage: 162 MILLIGRAM, QD
     Dates: start: 201710
  4. HIDROFEROL [Concomitant]
     Active Substance: CALCIFEDIOL
     Dosage: 0.26 MILLIGRAM, QD
     Route: 048
     Dates: start: 20180207
  5. TRAMADOL/PARACETAMOL TEVA [Concomitant]
     Active Substance: ACETAMINOPHEN\TRAMADOL
     Dosage: 1 DOSAGE FORM, Q8H
     Route: 048
     Dates: start: 20180415
  6. DIAZEPAN PRODES [Concomitant]
     Dosage: 20 MILLIGRAM, QD
     Route: 048
     Dates: start: 20190401
  7. ATORVASTATINA CINFA [Concomitant]
     Active Substance: ATORVASTATIN CALCIUM
     Dosage: 40 MILLIGRAM, QD
     Route: 048
     Dates: start: 20180825
  8. DAFIRO [Concomitant]
     Active Substance: AMLODIPINE\VALSARTAN
     Dosage: 1 DOSAGE FORM, QD
     Route: 048
     Dates: start: 20190415
  9. ESOMEPRAZOL TEVA [Concomitant]
     Dosage: 20 MILLIGRAM, QD
     Route: 048
     Dates: start: 20180207
  10. NOLOTIL                            /06276702/ [Concomitant]
     Active Substance: METAMIZOLE MAGNESIUM
     Dosage: 1.15 GRAM, Q8H
     Route: 048
     Dates: start: 20181121
  11. ZINOSAL [Concomitant]
     Active Substance: TIANEPTINE SODIUM
     Dosage: 12.5 MILLIGRAM, Q8H
     Route: 048
     Dates: start: 20160427
  12. SECALIP 145 MG COMPRIMIDOS RECUBIERTOS CON PEL?CULA [Suspect]
     Active Substance: FENOFIBRATE
     Indication: TYPE V HYPERLIPIDAEMIA
     Dosage: 145 MILLIGRAM, QD
     Route: 048
     Dates: start: 20190716, end: 20190731

REACTIONS (1)
  - Photodermatosis [Recovering/Resolving]

NARRATIVE: CASE EVENT DATE: 20190716
